FAERS Safety Report 6550046-2 (Version None)
Quarter: 2010Q1

REPORT INFORMATION
  Report Type: 
  Country: None (occurrence: None)
  Receive Date: 20100125
  Receipt Date: 20100119
  Transmission Date: 20100710
  Serious: Yes (Death)
  Sender: FDA-Public Use
  Company Number: US-CELGENEUS-163-21880-09071512

PATIENT
  Sex: Male
  Weight: 88.984 kg

DRUGS (1)
  1. REVLIMID [Suspect]
     Indication: MULTIPLE MYELOMA
     Route: 048
     Dates: start: 20090629, end: 20090101

REACTIONS (11)
  - ABDOMINAL PAIN UPPER [None]
  - ASTHENIA [None]
  - BALANCE DISORDER [None]
  - CONSTIPATION [None]
  - DEATH [None]
  - DECREASED APPETITE [None]
  - FALL [None]
  - FATIGUE [None]
  - HERPES ZOSTER [None]
  - OEDEMA PERIPHERAL [None]
  - SOMNOLENCE [None]
